FAERS Safety Report 8505528-0 (Version None)
Quarter: 2012Q2

REPORT INFORMATION
  Report Type: 
  Country: None (occurrence: None)
  Receive Date: 20120405
  Receipt Date: 20090326
  Transmission Date: 20120825
  Serious: Yes (Other)
  Sender: FDA-Public Use
  Company Number: PHEH2009US11547

PATIENT
  Age: 51 Year
  Sex: Female

DRUGS (1)
  1. RECLAST [Suspect]
     Dates: start: 20090205

REACTIONS (8)
  - DYSSTASIA [None]
  - SWELLING [None]
  - PAIN [None]
  - DYSPNOEA [None]
  - MOVEMENT DISORDER [None]
  - BONE PAIN [None]
  - LACRIMATION INCREASED [None]
  - HYPOVENTILATION [None]
